FAERS Safety Report 21342066 (Version 1)
Quarter: 2022Q3

REPORT INFORMATION
  Report Type: Spontaneous
  Country: NL (occurrence: NL)
  Receive Date: 20220916
  Receipt Date: 20220916
  Transmission Date: 20221027
  Serious: Yes (Other)
  Sender: FDA-Public Use
  Company Number: None

PATIENT
  Age: 66 Year
  Sex: Male
  Weight: 96 kg

DRUGS (7)
  1. ISOSORBIDE MONONITRATE [Suspect]
     Active Substance: ISOSORBIDE MONONITRATE
     Indication: Vasoconstriction
     Dosage: 1 X DAILY AT 8.00 VIA THE BAXTERROL ,  TABLET MGA 60MG / BRAND NAME NOT SPECIFIED , FORM STRENGTH :
     Dates: start: 20220708
  2. ISOSORBIDE MONONITRATE [Suspect]
     Active Substance: ISOSORBIDE MONONITRATE
     Dosage: 30 MILLIGRAM DAILY; 1 X DAILY AT 8.00 O^CLOCK, TABLET MGA 60MG / BRAND NAME NOT SPECIFIED , FORM STR
  3. EZETIMIBE [Concomitant]
     Active Substance: EZETIMIBE
     Indication: Product used for unknown indication
     Dosage: FORM STRENGTH : 10MG / BRAND NAME NOT SPECIFIED , THERAPY START DATE AND END DATE : ASKU
  4. ATORVASTATIN [Concomitant]
     Active Substance: ATORVASTATIN
     Indication: Product used for unknown indication
     Dosage: FORM STRENGTH :  20MG / BRAND NAME NOT SPECIFIED , THERAPY START DATE AND END DATE : ASKU
  5. LOSARTAN [Concomitant]
     Active Substance: LOSARTAN
     Indication: Product used for unknown indication
     Dosage: TABLET FO  50MG / BRAND NAME NOT SPECIFIED , THERAPY START DATE AND END DATE : ASKU , FORM STRENGTH
  6. ASPIRIN [Concomitant]
     Active Substance: ASPIRIN
     Indication: Product used for unknown indication
     Dosage: ACETYLSALICYLZUUR , FORM STRENGTH :  80MG / BRAND NAME NOT SPECIFIED , THERAPY START DATE AND END DA
  7. NAPROXEN [Concomitant]
     Active Substance: NAPROXEN
     Indication: Product used for unknown indication
     Dosage: 2 DOSAGE FORMS DAILY;  2 X DAILY ,FORM STRENGTH :  250MG / BRAND NAME NOT SPECIFIED, THERAPY START D

REACTIONS (3)
  - Deafness [Recovering/Resolving]
  - Vertigo [Recovering/Resolving]
  - Tinnitus [Recovering/Resolving]

NARRATIVE: CASE EVENT DATE: 20220715
